FAERS Safety Report 10979194 (Version 1)
Quarter: 2015Q1

REPORT INFORMATION
  Report Type: Spontaneous
  Country: DE (occurrence: None)
  Receive Date: 20150325
  Receipt Date: 20150325
  Transmission Date: 20150721
  Serious: Yes (Other)
  Sender: FDA-Public Use
  Company Number: GTI003077

PATIENT
  Sex: Male

DRUGS (1)
  1. PROLASTIN [Suspect]
     Active Substance: .ALPHA.1-PROTEINASE INHIBITOR HUMAN
     Indication: ALPHA-1 ANTI-TRYPSIN DEFICIENCY
     Route: 042
     Dates: start: 20140407, end: 20150224

REACTIONS (14)
  - Chills [None]
  - Chest pain [None]
  - Dizziness [None]
  - HIV infection [None]
  - Nausea [None]
  - Blood pressure decreased [None]
  - Dyspnoea [None]
  - Fatigue [None]
  - Decreased activity [None]
  - Headache [None]
  - Asthenia [None]
  - Rash [None]
  - Vomiting [None]
  - Chest discomfort [None]

NARRATIVE: CASE EVENT DATE: 2014
